FAERS Safety Report 6743214-8 (Version None)
Quarter: 2010Q2

REPORT INFORMATION
  Report Type: 
  Country: None (occurrence: None)
  Receive Date: 20100527
  Receipt Date: 20100521
  Transmission Date: 20101027
  Serious: Yes (Other)
  Sender: FDA-Public Use
  Company Number: JP-BAYER-200914478BYL

PATIENT
  Age: 70 Year
  Sex: Male
  Weight: 51 kg

DRUGS (3)
  1. NEXAVAR [Suspect]
     Indication: HEPATIC NEOPLASM MALIGNANT
     Dosage: UNIT DOSE: 200 MG
     Route: 048
     Dates: start: 20090919, end: 20091007
  2. NEXAVAR [Suspect]
     Dosage: UNIT DOSE: 200 MG
     Route: 048
     Dates: start: 20090901, end: 20090917
  3. NEXAVAR [Suspect]
     Dosage: UNIT DOSE: 200 MG
     Route: 048
     Dates: start: 20090821, end: 20090828

REACTIONS (4)
  - ABDOMINAL PAIN [None]
  - LIVER DISORDER [None]
  - RENAL DISORDER [None]
  - VOMITING [None]
